FAERS Safety Report 18958789 (Version 1)
Quarter: 2021Q1

REPORT INFORMATION
  Report Type: Spontaneous
  Country: US (occurrence: US)
  Receive Date: 20210302
  Receipt Date: 20210302
  Transmission Date: 20210420
  Serious: Yes (Hospitalization)
  Sender: FDA-Public Use
  Company Number: US-ASTRAZENECA-2021A081675

PATIENT
  Age: 71 Year
  Sex: Male

DRUGS (3)
  1. SEMAGLUTIDE [Concomitant]
     Active Substance: SEMAGLUTIDE
     Route: 058
  2. METFORMIN [Concomitant]
     Active Substance: METFORMIN HYDROCHLORIDE
  3. DAPAGLIFLOZIN. [Suspect]
     Active Substance: DAPAGLIFLOZIN
     Indication: TYPE 2 DIABETES MELLITUS
     Route: 048

REACTIONS (1)
  - Euglycaemic diabetic ketoacidosis [Recovered/Resolved]
